FAERS Safety Report 11787706 (Version 1)
Quarter: 2015Q4

REPORT INFORMATION
  Report Type: Spontaneous
  Country: DE (occurrence: DE)
  Receive Date: 20151130
  Receipt Date: 20151130
  Transmission Date: 20160305
  Serious: Yes (Hospitalization)
  Sender: FDA-Public Use
  Company Number: GXKR2015DE005195

PATIENT

DRUGS (19)
  1. OLANZAPIN [Suspect]
     Active Substance: OLANZAPINE
     Dosage: 10 MG, UNK
     Route: 048
     Dates: start: 20140921, end: 20140923
  2. MIRTAZAPINE. [Suspect]
     Active Substance: MIRTAZAPINE
     Dosage: 7.5 -30MG/D
     Route: 048
     Dates: start: 20140711, end: 20140722
  3. MIRTAZAPINE. [Suspect]
     Active Substance: MIRTAZAPINE
     Dosage: 45 MG, UNK
     Route: 048
     Dates: start: 20140723, end: 20140924
  4. OLANZAPIN [Suspect]
     Active Substance: OLANZAPINE
     Dosage: 5 MG, UNK
     Route: 048
     Dates: start: 20140924, end: 20141004
  5. LORAZEPAM. [Concomitant]
     Active Substance: LORAZEPAM
     Dosage: 2 MG, UNK
     Route: 048
     Dates: start: 20140627, end: 20140728
  6. BIFITERAL [Concomitant]
     Active Substance: LACTULOSE
     Dosage: 15 ML, UNK
     Route: 048
     Dates: start: 20140724
  7. AMLODIPINE [Concomitant]
     Active Substance: AMLODIPINE BESYLATE
     Dosage: 10 MG, UNK
     Route: 048
  8. RAMIPRIL. [Concomitant]
     Active Substance: RAMIPRIL
     Dosage: 10 MG, UNK
     Route: 048
  9. ALLOPURINOL. [Concomitant]
     Active Substance: ALLOPURINOL
     Dosage: 300 MG, UNK
     Route: 048
     Dates: end: 20141027
  10. SIMVASTATIN. [Concomitant]
     Active Substance: SIMVASTATIN
     Dosage: 40 MG, UNK
     Route: 048
     Dates: end: 20141020
  11. OLANZAPIN [Suspect]
     Active Substance: OLANZAPINE
     Dosage: 2.5-10MG/D
     Route: 048
     Dates: start: 20140711, end: 20140818
  12. VENLAFAXINE [Suspect]
     Active Substance: VENLAFAXINE HYDROCHLORIDE
     Dosage: 225 MG, UNK
     Route: 048
     Dates: start: 20140827, end: 20140924
  13. OLANZAPIN [Suspect]
     Active Substance: OLANZAPINE
     Dosage: 15 MG, UNK
     Route: 048
     Dates: start: 20140819, end: 20140920
  14. VENLAFAXINE [Suspect]
     Active Substance: VENLAFAXINE HYDROCHLORIDE
     Dosage: 37.5-150 MG/D
     Route: 048
     Dates: start: 20140808, end: 20140826
  15. VENLAFAXINE [Suspect]
     Active Substance: VENLAFAXINE HYDROCHLORIDE
     Dosage: 150 MG, UNK
     Route: 048
     Dates: start: 20140925, end: 20141013
  16. VENLAFAXINE [Suspect]
     Active Substance: VENLAFAXINE HYDROCHLORIDE
     Dosage: 75 MG, UNK
     Route: 048
     Dates: start: 20141014, end: 20141015
  17. VENLAFAXINE [Suspect]
     Active Substance: VENLAFAXINE HYDROCHLORIDE
     Dosage: 37.5 MG, UNK
     Route: 048
     Dates: start: 20141016, end: 20141020
  18. FOLSAEURE [Concomitant]
     Active Substance: FOLIC ACID
     Dosage: 10 MG, UNK
     Route: 048
     Dates: start: 20140819, end: 20141028
  19. KALINOR                                 /TUR/ [Concomitant]
     Dosage: 1800 MG, UNK
     Route: 048
     Dates: start: 20140809

REACTIONS (1)
  - Parkinsonism [Recovered/Resolved]

NARRATIVE: CASE EVENT DATE: 20140917
